FAERS Safety Report 13001138 (Version 3)
Quarter: 2017Q3

REPORT INFORMATION
  Report Type: Report from Study
  Country: US (occurrence: US)
  Receive Date: 20161206
  Receipt Date: 20170702
  Transmission Date: 20171127
  Serious: Yes (Death, Other)
  Sender: FDA-Public Use
  Company Number: US-AMGEN-USASL2016172353

PATIENT
  Age: 79 Year
  Sex: Male
  Weight: 55.52 kg

DRUGS (13)
  1. ASPIRIN. [Concomitant]
     Active Substance: ASPIRIN
     Dosage: 81 MG (1 TABLET), QD
     Route: 048
     Dates: start: 20120711
  2. NITROGLYCERIN. [Concomitant]
     Active Substance: NITROGLYCERIN
     Dosage: UNK
  3. IMDUR [Concomitant]
     Active Substance: ISOSORBIDE MONONITRATE
     Dosage: 30 MG (1 TABLET), QD (EVERY DAY IN MORNING)
     Route: 048
     Dates: start: 20160415
  4. PLAVIX [Concomitant]
     Active Substance: CLOPIDOGREL BISULFATE
     Dosage: 75 MG (1 TABLET), QD (PATIENTS REQUEST 90 DAYS SUPPLY)
     Route: 048
     Dates: start: 20160930
  5. FOLIC ACID. [Concomitant]
     Active Substance: FOLIC ACID
     Dosage: 400 MUG, (1 TABLET), QD
     Route: 048
     Dates: start: 20160415
  6. REPATHA [Suspect]
     Active Substance: EVOLOCUMAB
     Indication: HYPERCHOLESTEROLAEMIA
     Dosage: 140 MG, Q2WK
     Route: 065
  7. LEVOXYL [Concomitant]
     Active Substance: LEVOTHYROXINE SODIUM
     Dosage: 100 MUG, (1 TABLET), QD
     Route: 048
     Dates: start: 20121107
  8. OXYCONTIN [Concomitant]
     Active Substance: OXYCODONE HYDROCHLORIDE
     Dosage: 40 MG (1 TABLET), Q12H (AS DIRECTED)
     Route: 048
     Dates: start: 20150126
  9. VITAMIN B COMPLEX [Concomitant]
     Active Substance: CYANOCOBALAMIN\DEXPANTHENOL\NIACINAMIDE\PYRIDOXINE HYDROCHLORIDE\RIBOFLAVIN 5^-PHOSPHATE SODIUM\THIAMINE HYDROCHLORIDE\VITAMIN B COMPLEX
     Dosage: UNK (1 TABLET), QD AS DIRECTED
     Route: 048
     Dates: start: 20150126
  10. VITAMIN B12 [Concomitant]
     Active Substance: CYANOCOBALAMIN
     Dosage: 500 (1 TABLET), QD
     Route: 048
     Dates: start: 20160415
  11. VITAMIN D2 [Concomitant]
     Active Substance: ERGOCALCIFEROL
     Dosage: 50000 UNIT (1 CAPSULE), QMO
     Route: 048
     Dates: start: 20140120
  12. COENZYME Q10 [Concomitant]
     Active Substance: UBIDECARENONE
     Dosage: 100 MG (2 CAPSULE), QD
     Route: 048
     Dates: start: 20160415
  13. LYRICA [Concomitant]
     Active Substance: PREGABALIN
     Dosage: UNK, QD (1 CAPSULE)
     Route: 048
     Dates: start: 20161014

REACTIONS (3)
  - Chest discomfort [Unknown]
  - Death [Fatal]
  - Sinusitis [Not Recovered/Not Resolved]

NARRATIVE: CASE EVENT DATE: 20161126
